FAERS Safety Report 22250300 (Version 1)
Quarter: 2023Q2

REPORT INFORMATION
  Report Type: Report from Study
  Country: JP (occurrence: JP)
  Receive Date: 20230425
  Receipt Date: 20230425
  Transmission Date: 20230722
  Serious: Yes (Other)
  Sender: FDA-Public Use
  Company Number: JP-GLAXOSMITHKLINE-JP2023JPN057079

PATIENT

DRUGS (56)
  1. MEPOLIZUMAB [Suspect]
     Active Substance: MEPOLIZUMAB
     Indication: Eosinophilic granulomatosis with polyangiitis
     Dosage: 300 MG
     Dates: start: 20190531, end: 20190531
  2. MEPOLIZUMAB [Suspect]
     Active Substance: MEPOLIZUMAB
     Dosage: 300 MG
     Dates: start: 20190621, end: 20190621
  3. MEPOLIZUMAB [Suspect]
     Active Substance: MEPOLIZUMAB
     Dosage: 300 MG
     Dates: start: 20190712, end: 20190712
  4. MEPOLIZUMAB [Suspect]
     Active Substance: MEPOLIZUMAB
     Dosage: 300 MG
     Dates: start: 20190805, end: 20190805
  5. MEPOLIZUMAB [Suspect]
     Active Substance: MEPOLIZUMAB
     Dosage: 300 MG
     Dates: start: 20190902, end: 20190902
  6. MEPOLIZUMAB [Suspect]
     Active Substance: MEPOLIZUMAB
     Dosage: 300 MG
     Dates: start: 20190930, end: 20190930
  7. MEPOLIZUMAB [Suspect]
     Active Substance: MEPOLIZUMAB
     Dosage: 300 MG
     Dates: start: 20191028, end: 20191028
  8. MEPOLIZUMAB [Suspect]
     Active Substance: MEPOLIZUMAB
     Dosage: 300 MG
     Dates: start: 20191125, end: 20191125
  9. MEPOLIZUMAB [Suspect]
     Active Substance: MEPOLIZUMAB
     Dosage: 300 MG
     Dates: start: 20191223, end: 20191223
  10. MEPOLIZUMAB [Suspect]
     Active Substance: MEPOLIZUMAB
     Dosage: 300 MG
     Dates: start: 20200120, end: 20200120
  11. MEPOLIZUMAB [Suspect]
     Active Substance: MEPOLIZUMAB
     Dosage: 300 MG
     Dates: start: 20200217, end: 20200217
  12. MEPOLIZUMAB [Suspect]
     Active Substance: MEPOLIZUMAB
     Dosage: 300 MG
     Dates: start: 20200316, end: 20200316
  13. MEPOLIZUMAB [Suspect]
     Active Substance: MEPOLIZUMAB
     Dosage: 300 MG
     Dates: start: 20200413, end: 20200413
  14. MEPOLIZUMAB [Suspect]
     Active Substance: MEPOLIZUMAB
     Dosage: 300 MG
     Dates: start: 20200511, end: 20200511
  15. MEPOLIZUMAB [Suspect]
     Active Substance: MEPOLIZUMAB
     Dosage: 300 MG
     Dates: start: 20200608, end: 20200608
  16. MEPOLIZUMAB [Suspect]
     Active Substance: MEPOLIZUMAB
     Dosage: 300 MG
     Dates: start: 20200706, end: 20200706
  17. MEPOLIZUMAB [Suspect]
     Active Substance: MEPOLIZUMAB
     Dosage: 300 MG
     Dates: start: 20200803, end: 20200803
  18. MEPOLIZUMAB [Suspect]
     Active Substance: MEPOLIZUMAB
     Dosage: 300 MG
     Dates: start: 20200831, end: 20200831
  19. MEPOLIZUMAB [Suspect]
     Active Substance: MEPOLIZUMAB
     Dosage: 300 MG
     Dates: start: 20200928, end: 20200928
  20. MEPOLIZUMAB [Suspect]
     Active Substance: MEPOLIZUMAB
     Dosage: 300 MG
     Dates: start: 20201026, end: 20201026
  21. MEPOLIZUMAB [Suspect]
     Active Substance: MEPOLIZUMAB
     Dosage: 300 MG
     Dates: start: 20201130, end: 20201130
  22. MEPOLIZUMAB [Suspect]
     Active Substance: MEPOLIZUMAB
     Dosage: 300 MG
     Dates: start: 20201228, end: 20201228
  23. MEPOLIZUMAB [Suspect]
     Active Substance: MEPOLIZUMAB
     Dosage: 300 MG
     Dates: start: 20210125, end: 20210125
  24. MEPOLIZUMAB [Suspect]
     Active Substance: MEPOLIZUMAB
     Dosage: 300 MG
     Dates: start: 20210222, end: 20210222
  25. MEPOLIZUMAB [Suspect]
     Active Substance: MEPOLIZUMAB
     Dosage: 300 MG
     Dates: start: 20210322, end: 20210322
  26. FLUTICASONE FUROATE\VILANTEROL TRIFENATATE [Concomitant]
     Active Substance: FLUTICASONE FUROATE\VILANTEROL TRIFENATATE
     Dosage: 100 ?G, 1D
     Route: 055
  27. FLUTICASONE FUROATE\VILANTEROL TRIFENATATE [Concomitant]
     Active Substance: FLUTICASONE FUROATE\VILANTEROL TRIFENATATE
     Dosage: 1 DF, 1D
     Route: 055
     Dates: start: 20191223, end: 20200127
  28. PREDONINE [Concomitant]
     Active Substance: PREDNISOLONE
     Indication: Eosinophilic granulomatosis with polyangiitis
     Dosage: 60 MG, 1D
     Dates: end: 20190525
  29. PREDONINE [Concomitant]
     Active Substance: PREDNISOLONE
     Dosage: 50 MG
     Dates: start: 20190526, end: 20190608
  30. PREDONINE [Concomitant]
     Active Substance: PREDNISOLONE
     Dosage: 40 MG
     Dates: start: 20190609, end: 20190615
  31. PREDONINE [Concomitant]
     Active Substance: PREDNISOLONE
     Dosage: 30 MG
     Dates: start: 20190616, end: 20190622
  32. PREDONINE [Concomitant]
     Active Substance: PREDNISOLONE
     Dosage: 25 MG
     Dates: start: 20190623, end: 20190630
  33. PREDONINE [Concomitant]
     Active Substance: PREDNISOLONE
     Dosage: 20 MG
     Dates: start: 20190701, end: 20190707
  34. PREDONINE [Concomitant]
     Active Substance: PREDNISOLONE
     Dosage: 15 MG
     Dates: start: 20190708, end: 20190714
  35. PREDONINE [Concomitant]
     Active Substance: PREDNISOLONE
     Dosage: 10 MG
     Dates: start: 20190715, end: 20190721
  36. PREDONINE [Concomitant]
     Active Substance: PREDNISOLONE
     Dosage: 7.5 MG
     Dates: start: 20190722, end: 20190805
  37. PREDONINE [Concomitant]
     Active Substance: PREDNISOLONE
     Dosage: 5 MG
  38. PREDNISOLONE [Concomitant]
     Active Substance: PREDNISOLONE
     Indication: Eosinophilic granulomatosis with polyangiitis
     Dosage: 1 MG, 1D
     Dates: start: 20190902, end: 20190923
  39. PREDNISOLONE [Concomitant]
     Active Substance: PREDNISOLONE
     Dosage: 5 MG, 1D
     Dates: start: 20190924
  40. METHYLPREDNISOLONE SODIUM SUCCINATE [Concomitant]
     Active Substance: METHYLPREDNISOLONE SODIUM SUCCINATE
     Indication: Eosinophilic granulomatosis with polyangiitis
     Dosage: 1000 MG, 1D
     Route: 042
     Dates: start: 20190525, end: 20190527
  41. BILASTINE [Concomitant]
     Active Substance: BILASTINE
     Indication: Eosinophilic granulomatosis with polyangiitis
     Dosage: 20 MG, 1D
  42. MONTELUKAST OD [Concomitant]
     Dosage: 10 MG, 1D
  43. TEPRENONE [Concomitant]
     Active Substance: TEPRENONE
     Indication: Gastritis
     Dosage: 50 MG, 1D
  44. FLUTICASONE FUROATE [Concomitant]
     Active Substance: FLUTICASONE FUROATE
     Indication: Eosinophilic granulomatosis with polyangiitis
     Dosage: 2 DF, 1D
  45. FEBUXOSTAT [Concomitant]
     Active Substance: FEBUXOSTAT
     Indication: Hyperuricaemia
     Dosage: 20 MG, 1D
  46. CLOPIDOGREL BISULFATE [Concomitant]
     Active Substance: CLOPIDOGREL BISULFATE
     Dosage: 75 MG, 1D
     Dates: end: 20190519
  47. LOXOPROFEN SODIUM [Concomitant]
     Active Substance: LOXOPROFEN SODIUM
     Indication: Eosinophilic granulomatosis with polyangiitis
     Dosage: 60 MG, PRN
  48. CALONAL [Concomitant]
     Active Substance: ACETAMINOPHEN
     Indication: Eosinophilic granulomatosis with polyangiitis
     Dosage: 500 MG, PRN
  49. VONOPRAZAN FUMARATE [Concomitant]
     Active Substance: VONOPRAZAN FUMARATE
     Dosage: 20 MG, 1D
  50. CALFINA [Concomitant]
     Indication: Osteoporosis prophylaxis
     Dosage: 0.25 MG, 1D
  51. NIFEDIPINE [Concomitant]
     Active Substance: NIFEDIPINE
     Indication: Hypertension
     Dosage: 20 MG, 1D
     Dates: end: 20190602
  52. DAIPHEN COMBINATION TABLETS [Concomitant]
     Indication: Infection prophylaxis
     Dosage: 1 DF, 1D
     Dates: start: 20190531
  53. BELSOMRA [Concomitant]
     Active Substance: SUVOREXANT
     Dosage: 15 MG, 1D
     Dates: start: 20190605
  54. MARZULENE S COMBINATION GRANULES [Concomitant]
     Dosage: UNK
  55. SINGULAIR OD [Concomitant]
     Indication: Eosinophilic granulomatosis with polyangiitis
     Dosage: UNK
  56. ALFACALCIDOL [Concomitant]
     Active Substance: ALFACALCIDOL
     Dosage: UNK

REACTIONS (1)
  - Eosinophilic granulomatosis with polyangiitis [Not Recovered/Not Resolved]

NARRATIVE: CASE EVENT DATE: 20190924
